FAERS Safety Report 4411509-9 (Version None)
Quarter: 2004Q2

REPORT INFORMATION
  Report Type: 
  Country: None (occurrence: None)
  Receive Date: 20040630
  Receipt Date: 20040406
  Transmission Date: 20050107
  Serious: No
  Sender: FDA-Public Use
  Company Number: 04P-163-0256203-00

PATIENT
  Age: 77 Year
  Sex: Female
  Weight: 77.1115 kg

DRUGS (16)
  1. HUMIRA [Suspect]
     Indication: RHEUMATOID ARTHRITIS
     Dosage: 40 MG, 1 IN 2 WK, SUBCUTANEOUS
     Route: 058
     Dates: start: 20040201, end: 20040301
  2. HUMIRA [Suspect]
     Indication: RHEUMATOID ARTHRITIS
     Dosage: 40 MG, 1 IN 2 WK, SUBCUTANEOUS
     Route: 058
     Dates: start: 20040405
  3. AMITRIPTYLINE HCL [Concomitant]
  4. OMEPRAZOLE [Concomitant]
  5. LEVOTHYROXINE SODIUM [Concomitant]
  6. METHYLPREDNISOLONE [Concomitant]
  7. BUCINDOLOL HYDROCHLORIDE [Concomitant]
  8. METHOTREXATE [Concomitant]
  9. ALENDRONATE SODIUM [Concomitant]
  10. HYDROCODONE [Concomitant]
  11. TRAZODONE HCL [Concomitant]
  12. TOCOPHEROL CONCENTRATE CAP [Concomitant]
  13. MULTI-VITAMINS [Concomitant]
  14. CLOPIDOGREL BISULFATE [Concomitant]
  15. FOLIC ACID [Concomitant]
  16. FENOFIBRATE [Concomitant]

REACTIONS (4)
  - INJECTION SITE BURNING [None]
  - NASOPHARYNGITIS [None]
  - PHARYNGITIS [None]
  - RHINITIS [None]
